FAERS Safety Report 6552798-4 (Version None)
Quarter: 2010Q1

REPORT INFORMATION
  Report Type: 
  Country: None (occurrence: None)
  Receive Date: 20100121
  Receipt Date: 20100106
  Transmission Date: 20100710
  Serious: Yes (Hospitalization)
  Sender: FDA-Public Use
  Company Number: KV200800915

PATIENT
  Age: 51 Year
  Sex: Male
  Weight: 95.2 kg

DRUGS (21)
  1. ISOSORBIDE MONONITRATE [Suspect]
     Indication: CARDIAC DISORDER
     Dosage: 60 MG, QD, ORAL
     Route: 048
  2. SEROQUEL [Concomitant]
  3. VENLAFAXINE HCL [Concomitant]
  4. VALIUM [Concomitant]
  5. LOPRESSOR [Concomitant]
  6. VITAMIN E [Concomitant]
  7. ASPIRIN [Concomitant]
  8. LASIX [Concomitant]
  9. TRICOR [Concomitant]
  10. NORVASC [Concomitant]
  11. ACTOS [Concomitant]
  12. GLUCOPHAGE [Concomitant]
  13. TICLID [Concomitant]
  14. WELLBUTRIN [Concomitant]
  15. MEVACOR [Concomitant]
  16. ASCORBIC ACID [Concomitant]
  17. IRON (IRON) [Concomitant]
  18. FOLIC ACID [Concomitant]
  19. VITAMIN D [Concomitant]
  20. CALCIUM WITH VITAMIN D (CALCIUM CARBONATE, COLECALCIFEROL) [Concomitant]
  21. BENICAR [Concomitant]

REACTIONS (15)
  - ARTHRALGIA [None]
  - ASTHENIA [None]
  - CHEST PAIN [None]
  - CONFUSIONAL STATE [None]
  - DIZZINESS [None]
  - DRUG INEFFECTIVE [None]
  - FALL [None]
  - HEADACHE [None]
  - HYPERTENSION [None]
  - HYPOAESTHESIA [None]
  - MYALGIA [None]
  - OEDEMA PERIPHERAL [None]
  - SPEECH DISORDER [None]
  - TRANSIENT ISCHAEMIC ATTACK [None]
  - WEIGHT INCREASED [None]
